FAERS Safety Report 6978025-1 (Version None)
Quarter: 2010Q3

REPORT INFORMATION
  Report Type: 
  Country: None (occurrence: None)
  Receive Date: 20100913
  Receipt Date: 20100901
  Transmission Date: 20110219
  Serious: No
  Sender: FDA-Public Use
  Company Number: KR-JNJFOC-20100803965

PATIENT
  Age: 27 Year
  Sex: Male

DRUGS (2)
  1. DURAGESIC-100 [Suspect]
     Indication: PAIN MANAGEMENT
     Route: 062
  2. DOMPERIDONE MALEATE [Concomitant]
     Indication: ANTIEMETIC SUPPORTIVE CARE

REACTIONS (3)
  - DRUG ADMINISTRATION ERROR [None]
  - NAUSEA [None]
  - RASH [None]
